FAERS Safety Report 24460430 (Version 1)
Quarter: 2024Q4

REPORT INFORMATION
  Report Type: Report from Study
  Country: US (occurrence: US)
  Receive Date: 20241018
  Receipt Date: 20241018
  Transmission Date: 20250115
  Serious: No
  Sender: ROCHE
  Company Number: US-ROCHE-3558891

PATIENT
  Age: 62 Year
  Sex: Male

DRUGS (9)
  1. RITUXAN [Suspect]
     Active Substance: RITUXIMAB
     Indication: Sjogren^s syndrome
     Dosage: INFUSE 375 MG/M2?100 MG/10 ML
     Route: 042
  2. ALBUTEROL [Concomitant]
     Active Substance: ALBUTEROL
     Dosage: INHALE 2 PUFFS INHALATION QID
  3. ATORVASTATIN CALCIUM [Concomitant]
     Active Substance: ATORVASTATIN CALCIUM
     Dosage: TAKE 1 TABLET BY MOUTH NIGHTLY
  4. AZATHIOPRINE [Concomitant]
     Active Substance: AZATHIOPRINE
  5. CEFDINIR [Concomitant]
     Active Substance: CEFDINIR
  6. MEDROL [Concomitant]
     Active Substance: METHYLPREDNISOLONE
  7. OFEV [Concomitant]
     Active Substance: NINTEDANIB
  8. PILOCARPINE [Concomitant]
     Active Substance: PILOCARPINE
  9. VITAMIN C [Concomitant]
     Active Substance: ASCORBIC ACID

REACTIONS (2)
  - Off label use [Unknown]
  - No adverse event [Unknown]
